FAERS Safety Report 9664758 (Version 3)
Quarter: 2014Q1

REPORT INFORMATION
  Report Type: Report from Study
  Country: JP (occurrence: JP)
  Receive Date: 20131101
  Receipt Date: 20140214
  Transmission Date: 20141002
  Serious: Yes (Hospitalization)
  Sender: FDA-Public Use
  Company Number: JP-ABBVIE-13P-087-1165118-00

PATIENT
  Age: 37 Year
  Sex: Male

DRUGS (4)
  1. LIPACREON [Suspect]
     Indication: PANCREATIC INSUFFICIENCY
     Route: 048
     Dates: start: 20130502, end: 20130819
  2. LIPACREON [Suspect]
     Dates: start: 20130825, end: 20130910
  3. LIPACREON [Suspect]
     Dates: start: 20130914
  4. SODIUM RABEPRAZOLE [Concomitant]
     Indication: PRODUCT USED FOR UNKNOWN INDICATION
     Route: 048

REACTIONS (2)
  - Pancreatitis acute [Recovered/Resolved]
  - Pancreatitis acute [Recovering/Resolving]
